FAERS Safety Report 25165700 (Version 1)
Quarter: 2025Q2

REPORT INFORMATION
  Report Type: Spontaneous
  Country: GB (occurrence: GB)
  Receive Date: 20250407
  Receipt Date: 20250407
  Transmission Date: 20250717
  Serious: Yes (Other)
  Sender: AUROBINDO
  Company Number: GB-MHRA-MED-202503242342593390-HPDKG

PATIENT
  Age: 56 Year
  Sex: Female
  Weight: 82 kg

DRUGS (5)
  1. METRONIDAZOLE [Suspect]
     Active Substance: METRONIDAZOLE
     Indication: Adverse drug reaction
     Route: 065
     Dates: start: 20250319
  2. CEPHALEXIN [Concomitant]
     Active Substance: CEPHALEXIN
     Indication: Adverse drug reaction
     Route: 065
     Dates: start: 20250319
  3. METHOTREXATE SODIUM [Concomitant]
     Active Substance: METHOTREXATE SODIUM
     Indication: Psoriatic arthropathy
     Route: 065
     Dates: start: 20230101
  4. VENLAFAXINE [Concomitant]
     Active Substance: VENLAFAXINE HYDROCHLORIDE
     Indication: Anxiety
     Route: 065
     Dates: start: 20250228
  5. UPADACITINIB [Concomitant]
     Active Substance: UPADACITINIB
     Indication: Psoriatic arthropathy
     Route: 065
     Dates: start: 20240101

REACTIONS (5)
  - Nausea [Not Recovered/Not Resolved]
  - Dysgeusia [Not Recovered/Not Resolved]
  - Urine output [Not Recovered/Not Resolved]
  - Chromaturia [Not Recovered/Not Resolved]
  - Folliculitis [Not Recovered/Not Resolved]

NARRATIVE: CASE EVENT DATE: 20250320
